FAERS Safety Report 15284877 (Version 1)
Quarter: 2018Q3

REPORT INFORMATION
  Report Type: Spontaneous
  Country: US (occurrence: US)
  Receive Date: 20180801
  Receipt Date: 20180801
  Transmission Date: 20181010
  Serious: Yes (Life-Threatening)
  Sender: FDA-Public Use
  Company Number: None

PATIENT
  Age: 75 Year
  Sex: Male
  Weight: 84.1 kg

DRUGS (1)
  1. INTERLEUKIN?2 [Suspect]
     Active Substance: ALDESLEUKIN
     Indication: NON-SMALL CELL LUNG CANCER
     Route: 042
     Dates: start: 20180717, end: 20180718

REACTIONS (12)
  - Facial paralysis [None]
  - Hypercoagulation [None]
  - Oxygen saturation decreased [None]
  - Infusion related reaction [None]
  - Facial nerve disorder [None]
  - Dysarthria [None]
  - Disease progression [None]
  - Muscular weakness [None]
  - Cerebral infarction [None]
  - Cerebrovascular accident [None]
  - Embolism [None]
  - Coronary artery disease [None]
